FAERS Safety Report 5035361-6 (Version None)
Quarter: 2006Q2

REPORT INFORMATION
  Report Type: 
  Country: None (occurrence: None)
  Receive Date: 20060627
  Receipt Date: 20060614
  Transmission Date: 20061013
  Serious: Yes (Hospitalization, Other)
  Sender: FDA-Public Use
  Company Number: JP-AVENTIS-200611850JP

PATIENT
  Age: 33 Year
  Sex: Female
  Weight: 40 kg

DRUGS (9)
  1. FUROSEMIDE [Suspect]
     Indication: URINE OUTPUT DECREASED
     Route: 048
  2. FUROSEMIDE [Suspect]
     Indication: OEDEMA
     Route: 048
  3. FUROSEMIDE [Suspect]
     Indication: HEADACHE
     Route: 048
  4. DIART [Suspect]
     Indication: URINE OUTPUT DECREASED
     Route: 048
  5. DIART [Suspect]
     Indication: OEDEMA
     Route: 048
  6. DIART [Suspect]
     Indication: HEADACHE
     Route: 048
  7. FLUITRAN [Suspect]
     Indication: URINE OUTPUT DECREASED
     Route: 048
  8. FLUITRAN [Suspect]
     Indication: OEDEMA
     Route: 048
  9. FLUITRAN [Suspect]
     Indication: HEADACHE
     Route: 048

REACTIONS (13)
  - DRUG EXPOSURE DURING PREGNANCY [None]
  - HAEMATOCRIT DECREASED [None]
  - HAEMOCONCENTRATION [None]
  - HAEMOGLOBIN DECREASED [None]
  - HEADACHE [None]
  - HYPERTENSION [None]
  - HYPERURICAEMIA [None]
  - HYPOKALAEMIA [None]
  - PREGNANCY [None]
  - PREMATURE LABOUR [None]
  - PREMATURE RUPTURE OF MEMBRANES [None]
  - PSEUDO-BARTTER SYNDROME [None]
  - SELF-MEDICATION [None]
